FAERS Safety Report 20728852 (Version 2)
Quarter: 2022Q2

REPORT INFORMATION
  Report Type: Report from Study
  Country: CA (occurrence: CA)
  Receive Date: 20220420
  Receipt Date: 20220503
  Transmission Date: 20220721
  Serious: Yes (Other)
  Sender: FDA-Public Use
  Company Number: CA-JNJFOC-20220424853

PATIENT
  Age: 17 Year
  Sex: Male
  Weight: 80 kg

DRUGS (1)
  1. REMICADE [Suspect]
     Active Substance: INFLIXIMAB
     Indication: Crohn^s disease
     Dosage: ON 12-APR-2022, THE PATIENT HAD RECEIVED RAMICADE DOSE.
     Route: 042

REACTIONS (2)
  - Drug ineffective [Unknown]
  - Abdominal pain [Not Recovered/Not Resolved]

NARRATIVE: CASE EVENT DATE: 20220301
